FAERS Safety Report 13476032 (Version 1)
Quarter: 2017Q2

REPORT INFORMATION
  Report Type: Spontaneous
  Country: CN (occurrence: CN)
  Receive Date: 20170425
  Receipt Date: 20170425
  Transmission Date: 20170830
  Serious: Yes (Other)
  Sender: FDA-Public Use
  Company Number: CN-ASTRAZENECA-2017SE42347

PATIENT
  Age: 12054 Day
  Sex: Male
  Weight: 72 kg

DRUGS (3)
  1. BUDESONIDE. [Suspect]
     Active Substance: BUDESONIDE
     Indication: ALLERGY PROPHYLAXIS
     Route: 045
     Dates: start: 20161204
  2. BUDESONIDE. [Suspect]
     Active Substance: BUDESONIDE
     Indication: ALLERGY PROPHYLAXIS
     Route: 045
     Dates: start: 20161202, end: 20161202
  3. CLARITHROMYCIN. [Concomitant]
     Active Substance: CLARITHROMYCIN
     Indication: INFECTION
     Route: 048
     Dates: start: 20161202, end: 20161205

REACTIONS (2)
  - Headache [Recovering/Resolving]
  - Facial pain [Recovering/Resolving]

NARRATIVE: CASE EVENT DATE: 20161202
